FAERS Safety Report 5211503-4 (Version None)
Quarter: 2006Q4

REPORT INFORMATION
  Report Type: 
  Country: None (occurrence: None)
  Receive Date: 20061115
  Receipt Date: 20060607
  Transmission Date: 20070319
  Serious: No
  Sender: FDA-Public Use
  Company Number: 200610725BWH

PATIENT
  Age: 68 Year
  Sex: Male
  Weight: 77.1115 kg

DRUGS (11)
  1. NEXAVAR [Suspect]
     Indication: METASTATIC RENAL CELL CARCINOMA
     Dosage: 400 MG, BID, ORAL
     Route: 048
     Dates: start: 20050901
  2. LANTUS [Concomitant]
  3. PLAVIX [Concomitant]
  4. AMITRIPTYLINE HCL [Concomitant]
  5. ZETIA [Concomitant]
  6. CELEBREX [Concomitant]
  7. METFORMIN HCL [Concomitant]
  8. TOPRILEM [Concomitant]
  9. LEVOXYL [Concomitant]
  10. LISINOPRIL [Concomitant]
  11. STARLIX [Concomitant]

REACTIONS (1)
  - SKIN LESION [None]
